FAERS Safety Report 7841821-2 (Version None)
Quarter: 2011Q4

REPORT INFORMATION
  Report Type: 
  Country: None (occurrence: None)
  Receive Date: 20111025
  Receipt Date: 20111017
  Transmission Date: 20120403
  Serious: Yes (Life-Threatening, Hospitalization)
  Sender: FDA-Public Use
  Company Number: US-AMGEN-USASP2011053682

PATIENT
  Age: 50 Year
  Sex: Female
  Weight: 77.2 kg

DRUGS (7)
  1. DOXORUBICIN HCL [Suspect]
     Indication: BREAST CANCER
     Dosage: 60 MG/M2, UNK
     Route: 042
     Dates: start: 20080820, end: 20090319
  2. BEVACIZUMAB [Suspect]
     Indication: BREAST CANCER
     Dosage: 10 MG/KG, UNK
     Route: 042
     Dates: start: 20080820, end: 20090319
  3. PEGFILGRASTIM [Suspect]
     Indication: BREAST CANCER
     Dosage: 6 MG, UNK
     Dates: start: 20080820, end: 20090319
  4. FILGRASTIM [Suspect]
     Indication: BREAST CANCER
     Dosage: 5 MG/KG, UNK
     Dates: start: 20080820, end: 20090319
  5. CYCLOPHOSPHAMIDE [Suspect]
     Indication: BREAST CANCER
     Dosage: 600 MG/M2, UNK
     Dates: start: 20080820, end: 20090319
  6. TAMOXIFEN CITRATE [Concomitant]
  7. PACLITAXEL [Suspect]
     Indication: BREAST CANCER
     Dosage: 80 MG/M2, UNK
     Route: 042
     Dates: end: 20090319

REACTIONS (9)
  - DEVICE RELATED INFECTION [None]
  - BONE MARROW FAILURE [None]
  - FEBRILE NEUTROPENIA [None]
  - METASTASIS [None]
  - ANAEMIA [None]
  - PLATELET COUNT DECREASED [None]
  - PANCYTOPENIA [None]
  - STAPHYLOCOCCAL INFECTION [None]
  - PNEUMONIA [None]
